FAERS Safety Report 24000751 (Version 1)
Quarter: 2024Q2

REPORT INFORMATION
  Report Type: Spontaneous
  Country: US (occurrence: US)
  Receive Date: 20240621
  Receipt Date: 20240621
  Transmission Date: 20240716
  Serious: No
  Sender: FDA-Public Use
  Company Number: US-ROCHE-10000003927

PATIENT
  Age: 4 Year
  Sex: Female
  Weight: 17.78 kg

DRUGS (3)
  1. EVRYSDI [Suspect]
     Active Substance: RISDIPLAM
     Indication: Spinal muscular atrophy
     Route: 065
     Dates: start: 20230218
  2. EVRYSDI [Suspect]
     Active Substance: RISDIPLAM
     Route: 065
     Dates: start: 20240516
  3. DUPIXENT [Concomitant]
     Active Substance: DUPILUMAB
     Indication: Eczema

REACTIONS (1)
  - Eczema [Unknown]

NARRATIVE: CASE EVENT DATE: 20240101
